FAERS Safety Report 18962072 (Version 1)
Quarter: 2021Q1

REPORT INFORMATION
  Report Type: Spontaneous
  Country: DE (occurrence: DE)
  Receive Date: 20210303
  Receipt Date: 20210303
  Transmission Date: 20210420
  Serious: Yes (Death, Hospitalization)
  Sender: FDA-Public Use
  Company Number: NVSC2021DE047365

PATIENT
  Age: 5 Year
  Sex: Male
  Weight: 17 kg

DRUGS (8)
  1. CICLOSPORIN [Suspect]
     Active Substance: CYCLOSPORINE
     Indication: GRAFT VERSUS HOST DISEASE
     Dosage: 80 MG, QD (DAILY DOSE: 80 MG MILLGRAM(S) EVERY DAYS 2 SEPARATED DOSES)
     Route: 048
     Dates: start: 201410, end: 20200104
  2. BRIVARACETAM [Concomitant]
     Active Substance: BRIVARACETAM
     Indication: LENNOX-GASTAUT SYNDROME
     Dosage: 170 MG, QD, (DAILY DOSE: 170 MG MILLGRAM(S) EVERY DAYS 2 SEPARATED DOSES)
     Route: 065
     Dates: start: 20190701, end: 20200104
  3. FLUCONAZOL [Concomitant]
     Active Substance: FLUCONAZOLE
     Indication: INFECTION PROPHYLAXIS
     Dosage: 50 MG, QD (DAILY DOSE: 50 MG MILLGRAM(S) EVERY DAYS)
     Route: 065
     Dates: start: 201410, end: 20200104
  4. MYCOPHENOLATE MOFETIL. [Suspect]
     Active Substance: MYCOPHENOLATE MOFETIL
     Indication: GRAFT VERSUS HOST DISEASE
     Dosage: 800 MG, QD (DAILY DOSE: 800 MG MILLGRAM(S) EVERY DAYS 2 SEPARATED DOSES)
     Route: 048
     Dates: start: 201803, end: 20200104
  5. ATENOLOL. [Concomitant]
     Active Substance: ATENOLOL
     Indication: SECONDARY HYPERTENSION
     Dosage: 12.5 MG, QD (DAILY DOSE: 12.5 MG MILLGRAM(S) EVERY DAYS)
     Route: 065
     Dates: start: 201410, end: 20200104
  6. COTRIMOXAZOL [Concomitant]
     Active Substance: SULFAMETHOXAZOLE\TRIMETHOPRIM
     Indication: INFECTION PROPHYLAXIS
     Dosage: 80 MG, QW (DAILY DOSE: 80 MG MILLGRAM(S) EVERY WEEKS 2 SEPARATED DOSES)
     Route: 065
     Dates: start: 201410, end: 20200104
  7. ENALAPRIL [Concomitant]
     Active Substance: ENALAPRIL
     Indication: SECONDARY HYPERTENSION
     Dosage: 3 MG, QD (DAILY DOSE: 3 MG MILLGRAM(S) EVERY DAYS)
     Route: 065
     Dates: start: 201410, end: 20200104
  8. FYCOMPA [Concomitant]
     Active Substance: PERAMPANEL
     Indication: LENNOX-GASTAUT SYNDROME
     Dosage: 0.5 MG, QD (DAILY DOSE: 0.5 MG MILLGRAM(S) EVERY DAYS)
     Route: 065
     Dates: start: 20191211, end: 20191217

REACTIONS (3)
  - Pneumonia pseudomonal [Fatal]
  - Respiratory failure [Fatal]
  - Bacterial infection [Fatal]

NARRATIVE: CASE EVENT DATE: 20191218
